FAERS Safety Report 5839751-0 (Version None)
Quarter: 2008Q3

REPORT INFORMATION
  Report Type: 
  Country: None (occurrence: None)
  Receive Date: 20080811
  Receipt Date: 20080804
  Transmission Date: 20090109
  Serious: Yes (Other)
  Sender: FDA-Public Use
  Company Number: US-BRISTOL-MYERS SQUIBB COMPANY-14288393

PATIENT
  Age: 57 Year
  Sex: Male
  Weight: 96 kg

DRUGS (3)
  1. CISPLATIN [Suspect]
     Indication: HEAD AND NECK CANCER
     Dosage: C 1 START DATE:5MAY8.TOTAL DOSE THIS COURSE: 195 MG, DELAYED 2JUN8+RESUMED 10JUN8 25% DOSE REDUCTION
     Route: 042
     Dates: start: 20080512, end: 20080512
  2. CETUXIMAB [Suspect]
     Indication: HEAD AND NECK CANCER
     Dosage: C1 START DATE: 05MAY08. TOTAL DOSE THIS COURSE: 2599 MG
     Route: 042
     Dates: start: 20080527, end: 20080527
  3. RADIATION THERAPY [Suspect]
     Indication: HEAD AND NECK CANCER
     Dosage: C1 START DATE:05MAY08, TOTAL DOSE THIS COURSE: 2520 GY,FRAC 42,ELASPSED DAYS 18. DELAYED X3D 2JUN08.
     Dates: start: 20080530, end: 20080530

REACTIONS (1)
  - STOMATITIS [None]
